FAERS Safety Report 8779316 (Version 1)
Quarter: 2012Q4

REPORT INFORMATION
  Report Type: 
  Country: US (occurrence: US)
  Receive Date: 20120911
  Receipt Date: 20120911
  Transmission Date: 20130627
  Serious: Yes (Other)
  Sender: FDA-Public Use
  Company Number: US-ELI_LILLY_AND_COMPANY-US201209001188

PATIENT
  Age: 58 Year
  Sex: Female

DRUGS (4)
  1. EFFIENT [Suspect]
     Indication: STENT PLACEMENT
     Dosage: 10 mg, unknown
     Route: 048
     Dates: start: 2010, end: 20120831
  2. ASPIRIN [Concomitant]
  3. RANEXA [Concomitant]
  4. ZOCOR [Concomitant]

REACTIONS (3)
  - Arterial haemorrhage [Unknown]
  - Ischaemic stroke [Unknown]
  - Blindness unilateral [Recovered/Resolved]
